FAERS Safety Report 12408422 (Version 1)
Quarter: 2016Q2

REPORT INFORMATION
  Report Type: Spontaneous
  Country: DE (occurrence: DE)
  Receive Date: 20160526
  Receipt Date: 20160526
  Transmission Date: 20160815
  Serious: Yes (Other)
  Sender: FDA-Public Use
  Company Number: DE-TEVA-655433GER

PATIENT
  Sex: Male

DRUGS (4)
  1. IBUPROFEN. [Interacting]
     Active Substance: IBUPROFEN
     Route: 048
  2. RAMIPRIL-RATIOPHARM COMP. 5 MG/25 MG TABLETTEN [Interacting]
     Active Substance: HYDROCHLOROTHIAZIDE\RAMIPRIL
     Indication: BLOOD PRESSURE ABNORMAL
     Dosage: 1 DOSAGE FORMS DAILY; 1 TABLET CONTAINS 5MG RAMIPRIL AND 25MG HYDROCHLOROTHIAZIDE
     Route: 048
     Dates: start: 201507
  3. RAMIPRIL 5MG [Suspect]
     Active Substance: RAMIPRIL
     Indication: BLOOD PRESSURE ABNORMAL
     Dosage: 2.5 MILLIGRAM DAILY;
     Route: 048
  4. PANTOPRAZOL 40 [Suspect]
     Active Substance: PANTOPRAZOLE SODIUM
     Indication: DUODENAL ULCER
     Route: 048

REACTIONS (7)
  - Duodenal ulcer [Not Recovered/Not Resolved]
  - Syncope [Unknown]
  - Dyspepsia [Unknown]
  - Abdominal discomfort [Unknown]
  - Dizziness [Unknown]
  - Nocturia [Unknown]
  - Drug interaction [Unknown]
